FAERS Safety Report 8893119 (Version 1)
Quarter: 2012Q4

REPORT INFORMATION
  Report Type: 
  Country: US (occurrence: US)
  Receive Date: 20121107
  Receipt Date: 20121107
  Transmission Date: 20130627
  Serious: No
  Sender: FDA-Public Use
  Company Number: US-AMGEN-USASP2011053843

PATIENT
  Age: 60 Year
  Sex: Female

DRUGS (20)
  1. ENBREL [Suspect]
     Indication: PRODUCT USED FOR UNKNOWN INDICATION
     Dosage: 50 mg, qwk
     Route: 058
  2. DETROL LA [Concomitant]
     Dosage: 4 mg, UNK
  3. AMLODIPINE [Concomitant]
     Dosage: 5 mg, UNK
  4. METHOTREXATE [Concomitant]
     Dosage: 2.5 mg, UNK
  5. BUPROPION [Concomitant]
     Dosage: 75 mg, UNK
  6. LISINOPRIL [Concomitant]
     Dosage: 10 mg, UNK
  7. FOLIC ACID [Concomitant]
     Dosage: 1 mg, UNK
  8. VITAMIN E [Concomitant]
     Dosage: UNK
  9. BENZONATATE [Concomitant]
     Dosage: 100 mg, UNK
  10. NEXIUM [Concomitant]
     Dosage: 20 mg, UNK
  11. CLARITIN-D [Concomitant]
     Dosage: UNK
  12. AMILORIDE HCL W/HYDROCHLOROTHIAZIDE [Concomitant]
     Dosage: UNK
  13. OXYCODONE [Concomitant]
     Dosage: 5 mg, UNK
  14. SKELAXIN [Concomitant]
     Dosage: 800 mg, UNK
  15. MIRALAX [Concomitant]
     Dosage: UNK
  16. POTASSIUM [Concomitant]
     Dosage: 75 mg, UNK
  17. CRANBERRY [Concomitant]
     Dosage: 200 mg, UNK
  18. MULTIVITAMIN [Concomitant]
     Dosage: UNK
  19. OXYCONTIN [Concomitant]
     Dosage: 10 mg, UNK
  20. LEVOTHYROXIN [Concomitant]
     Dosage: 25 mug, UNK

REACTIONS (2)
  - Fatigue [Unknown]
  - Malaise [Unknown]
